FAERS Safety Report 5458616-X (Version None)
Quarter: 2007Q3

REPORT INFORMATION
  Report Type: 
  Country: None (occurrence: None)
  Receive Date: 20070919
  Receipt Date: 20070914
  Transmission Date: 20080115
  Serious: Yes (Other)
  Sender: FDA-Public Use
  Company Number: US-BRISTOL-MYERS SQUIBB COMPANY-13909452

PATIENT
  Age: 37 Year
  Sex: Male
  Weight: 68 kg

DRUGS (2)
  1. REYATAZ [Suspect]
     Indication: HIV INFECTION
     Route: 048
     Dates: start: 20070101
  2. COMBIVIR [Concomitant]

REACTIONS (2)
  - ARRHYTHMIA [None]
  - HEART RATE DECREASED [None]
